FAERS Safety Report 13645591 (Version 14)
Quarter: 2020Q3

REPORT INFORMATION
  Report Type: Spontaneous
  Country: US (occurrence: US)
  Receive Date: 20170613
  Receipt Date: 20200807
  Transmission Date: 20201102
  Serious: Yes (Other)
  Sender: FDA-Public Use
  Company Number: PHEH2017US017860

PATIENT
  Age: 30 Year
  Sex: Female
  Weight: 56.69 kg

DRUGS (4)
  1. ZOFRAN [Suspect]
     Active Substance: ONDANSETRON HYDROCHLORIDE
     Dosage: 4 MG, Q12H
     Route: 048
     Dates: start: 20051203, end: 20051218
  2. ZOFRAN [Suspect]
     Active Substance: ONDANSETRON HYDROCHLORIDE
     Dosage: 4 MG, QD
     Route: 048
     Dates: start: 20060103, end: 20060510
  3. ZOFRAN [Suspect]
     Active Substance: ONDANSETRON HYDROCHLORIDE
     Indication: HYPEREMESIS GRAVIDARUM
     Dosage: 4 MG, UNK
     Route: 042
     Dates: start: 20051120, end: 20051120
  4. ZOFRAN [Suspect]
     Active Substance: ONDANSETRON HYDROCHLORIDE
     Indication: MORNING SICKNESS
     Dosage: 04 MG, Q12H
     Route: 048
     Dates: start: 20051121, end: 20051202

REACTIONS (9)
  - Maternal exposure during pregnancy [Unknown]
  - Dermatitis [Unknown]
  - Product use in unapproved indication [Unknown]
  - Gestational diabetes [Unknown]
  - Dehydration [Unknown]
  - Urinary tract infection [Unknown]
  - Back pain [Unknown]
  - Premature delivery [Unknown]
  - Injury [Unknown]

NARRATIVE: CASE EVENT DATE: 20060510
